FAERS Safety Report 6979913-2 (Version None)
Quarter: 2010Q3

REPORT INFORMATION
  Report Type: 
  Country: None (occurrence: None)
  Receive Date: 20100914
  Receipt Date: 20100903
  Transmission Date: 20110219
  Serious: No
  Sender: FDA-Public Use
  Company Number: US-US-EMD SERONO, INC.-7016738

PATIENT
  Sex: Female

DRUGS (5)
  1. REBIF [Suspect]
     Indication: MULTIPLE SCLEROSIS
     Route: 058
     Dates: start: 20100713, end: 20100901
  2. ASPIRIN [Concomitant]
     Indication: PROPHYLAXIS
  3. VERAPAMIL [Concomitant]
     Indication: MIGRAINE
  4. PHENERGAN [Concomitant]
     Indication: NAUSEA
  5. VALERIAN ROOT [Concomitant]
     Indication: INSOMNIA

REACTIONS (5)
  - ABDOMINAL PAIN UPPER [None]
  - ANXIETY [None]
  - NAUSEA [None]
  - OVARIAN CYST [None]
  - VOMITING [None]
